FAERS Safety Report 18151422 (Version 2)
Quarter: 2020Q3

REPORT INFORMATION
  Report Type: Report from Study
  Country: JP (occurrence: JP)
  Receive Date: 20200814
  Receipt Date: 20200818
  Transmission Date: 20201103
  Serious: Yes (Other)
  Sender: FDA-Public Use
  Company Number: JP-AMGEN-JPNCT2020130142

PATIENT
  Age: 86 Year
  Sex: Female

DRUGS (7)
  1. DARBEPOETIN ALFA [Suspect]
     Active Substance: DARBEPOETIN ALFA
     Dosage: 240 UG, 1X/2 WEEKS
     Route: 058
     Dates: start: 20171114, end: 20171226
  2. DARBEPOETIN ALFA [Suspect]
     Active Substance: DARBEPOETIN ALFA
     Indication: MYELODYSPLASTIC SYNDROME
     Dosage: 240 MICROGRAM
     Route: 058
     Dates: start: 20180327, end: 20180327
  3. DARBEPOETIN ALFA [Suspect]
     Active Substance: DARBEPOETIN ALFA
     Dosage: 240 UG, 1X/2 WEEKS
     Route: 058
     Dates: start: 20180522, end: 20180619
  4. DARBEPOETIN ALFA [Suspect]
     Active Substance: DARBEPOETIN ALFA
     Dosage: 120 MICROGRAM
     Route: 058
     Dates: start: 20171031, end: 20171031
  5. FOLIAMIN [Concomitant]
     Active Substance: FOLIC ACID
     Indication: FOLATE DEFICIENCY
     Dosage: 10 MG
     Route: 048
     Dates: start: 20171005, end: 20171213
  6. DARBEPOETIN ALFA [Suspect]
     Active Substance: DARBEPOETIN ALFA
     Dosage: 240 UG, 1X/2 WEEKS
     Route: 058
     Dates: start: 20180116, end: 20180213
  7. DARBEPOETIN ALFA [Suspect]
     Active Substance: DARBEPOETIN ALFA
     Dosage: 240 UG, 1X/3 WEEKS
     Route: 058
     Dates: start: 20180717, end: 20180807

REACTIONS (3)
  - Oedema [Recovered/Resolved]
  - Iron deficiency anaemia [Recovered/Resolved]
  - Cardiac failure congestive [Recovered/Resolved]

NARRATIVE: CASE EVENT DATE: 20180422
